FAERS Safety Report 18799672 (Version 1)
Quarter: 2021Q1

REPORT INFORMATION
  Report Type: Report from Study
  Country: US (occurrence: US)
  Receive Date: 20210128
  Receipt Date: 20210128
  Transmission Date: 20210419
  Serious: No
  Sender: FDA-Public Use
  Company Number: US-LUNDBECK-DKLU3025006

PATIENT
  Age: 61 Year
  Sex: Female

DRUGS (4)
  1. ZOFRAN [Concomitant]
     Active Substance: ONDANSETRON HYDROCHLORIDE
     Indication: ABDOMINAL DISCOMFORT
     Route: 065
  2. AIMOVIG [Concomitant]
     Active Substance: ERENUMAB-AOOE
     Indication: PRODUCT USED FOR UNKNOWN INDICATION
     Route: 065
     Dates: start: 2018
  3. EMGALITY [Concomitant]
     Active Substance: GALCANEZUMAB-GNLM
     Indication: PRODUCT USED FOR UNKNOWN INDICATION
     Route: 065
  4. VYEPTI [Suspect]
     Active Substance: EPTINEZUMAB-JJMR
     Indication: MIGRAINE
     Route: 042
     Dates: start: 20201204

REACTIONS (2)
  - Infusion site bruising [Unknown]
  - Nausea [Unknown]

NARRATIVE: CASE EVENT DATE: 202012
